FAERS Safety Report 20675042 (Version 1)
Quarter: 2022Q2

REPORT INFORMATION
  Report Type: Spontaneous
  Country: US (occurrence: US)
  Receive Date: 20220405
  Receipt Date: 20220405
  Transmission Date: 20220720
  Serious: No
  Sender: FDA-Public Use
  Company Number: US-PFIZER INC-202101133676

PATIENT
  Age: 55 Year
  Sex: Female

DRUGS (1)
  1. IBRANCE [Suspect]
     Active Substance: PALBOCICLIB
     Dosage: UNK (SHE HAD ONLY BEEN TAKING IT FOR 2 MONTHS)

REACTIONS (4)
  - Neoplasm progression [Unknown]
  - Breast enlargement [Unknown]
  - Dysphonia [Unknown]
  - Limb discomfort [Unknown]
